FAERS Safety Report 9415100 (Version 1)
Quarter: 2013Q3

REPORT INFORMATION
  Report Type: Spontaneous
  Country: TR (occurrence: TR)
  Receive Date: 20130723
  Receipt Date: 20130723
  Transmission Date: 20140515
  Serious: Yes (Death, Life-Threatening)
  Sender: FDA-Public Use
  Company Number: TR-MERCK-1307TUR009831

PATIENT
  Age: 6 Year
  Sex: Female
  Weight: 21 kg

DRUGS (11)
  1. CASPOFUNGIN ACETATE [Suspect]
     Dosage: UNK
     Dates: start: 20130623
  2. VORICONAZOLE [Concomitant]
     Dosage: 84 MG, BID
     Route: 042
  3. MEROPENEM [Concomitant]
     Dosage: UNK
  4. GLOBULIN, IMMUNE [Concomitant]
     Dosage: UNK, QW
     Route: 041
  5. CRYOPRECIPITATE [Concomitant]
     Dosage: 6 DOSE DAILY
  6. TEICOPLANIN [Concomitant]
     Dosage: UNK
  7. PLATELET CONCENTRATE [Concomitant]
  8. BLOOD CELLS, RED [Concomitant]
  9. AMIKACIN [Concomitant]
  10. FENTANYL [Concomitant]
  11. DORMICUM (MIDAZOLAM) [Concomitant]

REACTIONS (1)
  - Pulmonary haemorrhage [Fatal]
